FAERS Safety Report 21938067 (Version 1)
Quarter: 2023Q1

REPORT INFORMATION
  Report Type: Other
  Country: CA (occurrence: None)
  Receive Date: 20230201
  Receipt Date: 20230201
  Transmission Date: 20230417
  Serious: Yes (Hospitalization, Other)
  Sender: FDA-Public Use
  Company Number: CA-Invatech-000282

PATIENT
  Sex: Male

DRUGS (1)
  1. PYRIDOSTIGMINE [Suspect]
     Active Substance: PYRIDOSTIGMINE
     Indication: Product used for unknown indication

REACTIONS (4)
  - Respiratory failure [Recovered/Resolved]
  - Drug ineffective [Unknown]
  - Infantile apnoea [Recovered/Resolved]
  - Bradycardia [Unknown]
